FAERS Safety Report 8896072 (Version 6)
Quarter: 2014Q2

REPORT INFORMATION
  Report Type: Report from Study
  Country: GB (occurrence: GB)
  Receive Date: 20121108
  Receipt Date: 20140501
  Transmission Date: 20141212
  Serious: Yes (Other)
  Sender: FDA-Public Use
  Company Number: GB-NOVOPROD-362994

PATIENT
  Age: 73 Year
  Sex: Male
  Weight: 89.5 kg

DRUGS (19)
  1. LIRAGLUTIDE FLEXPEN [Suspect]
     Indication: TYPE 2 DIABETES MELLITUS
     Dosage: 1.8 MG, QD
     Route: 058
     Dates: start: 20120725
  2. ASPIRIN [Concomitant]
     Indication: PRODUCT USED FOR UNKNOWN INDICATION
     Dosage: 75 MG, QD
     Dates: start: 199609
  3. BENDROFLUMETHIAZIDE [Concomitant]
     Indication: PRODUCT USED FOR UNKNOWN INDICATION
     Dosage: 2.5 MG, QD
     Dates: start: 201110
  4. ATORVASTATIN [Concomitant]
     Indication: PRODUCT USED FOR UNKNOWN INDICATION
     Dosage: 20 MG, QD
     Dates: start: 199911
  5. GTN [Concomitant]
     Indication: PRODUCT USED FOR UNKNOWN INDICATION
     Dosage: 1.0 OTHER SPRAY QD
     Dates: start: 199909
  6. LEVEMIR [Concomitant]
     Indication: DIABETES MELLITUS
     Dosage: 34 U, QD
     Dates: start: 200805, end: 20120823
  7. LEVEMIR [Concomitant]
     Dosage: 26 U, QD
     Dates: start: 20120824, end: 201211
  8. LEVEMIR [Concomitant]
     Dosage: 28 U, QD
     Dates: start: 2012, end: 20121116
  9. LEVEMIR [Concomitant]
     Dosage: 22 U, QD
     Dates: start: 20121117
  10. LOSARTAN [Concomitant]
     Indication: PRODUCT USED FOR UNKNOWN INDICATION
     Dosage: 100 MG, QD
     Dates: start: 200810
  11. METFORMIN [Concomitant]
     Indication: DIABETES MELLITUS
     Dosage: 2550 MG, QD
     Dates: start: 199906
  12. MOXONIDINE [Concomitant]
     Indication: PRODUCT USED FOR UNKNOWN INDICATION
     Dosage: 400 MG, QD
     Dates: start: 200108
  13. NICORANDIL [Concomitant]
     Indication: PRODUCT USED FOR UNKNOWN INDICATION
     Dosage: 40 MG, QD
     Dates: start: 200504
  14. RAMIPRIL [Concomitant]
     Indication: PRODUCT USED FOR UNKNOWN INDICATION
     Dosage: 20 MG, QD
     Dates: start: 199909
  15. TADALAFIL [Concomitant]
     Indication: PRODUCT USED FOR UNKNOWN INDICATION
     Dosage: 20 MG, PRN
     Dates: start: 201002
  16. EURAX [Concomitant]
     Indication: PROPHYLAXIS
     Dosage: 30 G, QD (10% CREAM)
     Dates: start: 201009
  17. BUMETANIDE [Concomitant]
     Indication: PROPHYLAXIS
     Dosage: 3 MG, QD
     Dates: start: 201012
  18. EPLERENONE [Concomitant]
     Indication: PRODUCT USED FOR UNKNOWN INDICATION
     Dosage: 25 MG, QD
     Dates: start: 201012
  19. WARFARIN [Concomitant]
     Indication: PRODUCT USED FOR UNKNOWN INDICATION
     Dosage: 5 MG, QD
     Dates: start: 201110

REACTIONS (2)
  - C-reactive protein increased [Recovered/Resolved]
  - Urine albumin/creatinine ratio increased [Recovered/Resolved]
